FAERS Safety Report 9935050 (Version 2)
Quarter: 2014Q1

REPORT INFORMATION
  Report Type: Spontaneous
  Country: BR (occurrence: BR)
  Receive Date: 20140228
  Receipt Date: 20140228
  Transmission Date: 20141002
  Serious: Yes (Other)
  Sender: FDA-Public Use
  Company Number: BR-PFIZER INC-2014050652

PATIENT
  Age: 61 Year
  Sex: Male
  Weight: 70 kg

DRUGS (1)
  1. LIPITOR [Suspect]
     Indication: HYPERTENSION
     Dosage: 20 MG, 1 TABLET A DAY (IN THE MORNING)
     Route: 048
     Dates: start: 2012

REACTIONS (3)
  - Tendonitis [Not Recovered/Not Resolved]
  - Activities of daily living impaired [Unknown]
  - Off label use [Unknown]
